FAERS Safety Report 25247525 (Version 2)
Quarter: 2025Q2

REPORT INFORMATION
  Report Type: Spontaneous
  Country: CN (occurrence: CN)
  Receive Date: 20250428
  Receipt Date: 20250515
  Transmission Date: 20250717
  Serious: Yes (Other)
  Sender: BAUSCH AND LOMB
  Company Number: CN-BAUSCH-BL-2025-005456

PATIENT
  Age: 74 Year
  Sex: Female
  Weight: 75 kg

DRUGS (9)
  1. DEXAMETHASONE [Suspect]
     Active Substance: DEXAMETHASONE
     Indication: Mastocytic leukaemia
     Dosage: FIRST STAGE
     Route: 042
  2. DEXAMETHASONE [Suspect]
     Active Substance: DEXAMETHASONE
     Dosage: THIRD STAGE
     Route: 042
  3. DEXAMETHASONE [Suspect]
     Active Substance: DEXAMETHASONE
     Dosage: THIRD STAGE
     Route: 065
  4. DASATINIB [Suspect]
     Active Substance: DASATINIB
     Indication: Mastocytic leukaemia
     Dosage: SECOND STAGE (7 DAYS)
     Route: 065
  5. DASATINIB [Suspect]
     Active Substance: DASATINIB
     Dosage: THIRD STAGE (5 DAYS)
     Route: 065
  6. DASATINIB [Suspect]
     Active Substance: DASATINIB
     Dosage: FIFTH STAGE (12 DAYS)
     Route: 065
  7. METHYLPREDNISOLONE [Concomitant]
     Active Substance: METHYLPREDNISOLONE
     Indication: Mastocytic leukaemia
     Dosage: SECOND STAGE (7 DAYS)
  8. METHYLPREDNISOLONE [Concomitant]
     Active Substance: METHYLPREDNISOLONE
     Dosage: FOURTH STAGE (9 DAYS)
  9. METHYLPREDNISOLONE [Concomitant]
     Active Substance: METHYLPREDNISOLONE

REACTIONS (1)
  - Therapy partial responder [Unknown]
